FAERS Safety Report 23539923 (Version 1)
Quarter: 2024Q1

REPORT INFORMATION
  Report Type: Spontaneous
  Country: US (occurrence: US)
  Receive Date: 20240219
  Receipt Date: 20240219
  Transmission Date: 20240409
  Serious: No
  Sender: FDA-Public Use
  Company Number: US-CTI BIOPHARMA-2024US04511

PATIENT

DRUGS (7)
  1. VONJO [Suspect]
     Active Substance: PACRITINIB
     Indication: Product used for unknown indication
     Dosage: 100 MG, BID
     Route: 048
  2. AMLODIPINE [Concomitant]
     Active Substance: AMLODIPINE BESYLATE
  3. FELODIPINE [Concomitant]
     Active Substance: FELODIPINE
  4. GEMFIBROZIL [Concomitant]
     Active Substance: GEMFIBROZIL
  5. METHOCARBAMOL [Concomitant]
     Active Substance: METHOCARBAMOL
  6. METOPROLOL [Concomitant]
     Active Substance: METOPROLOL
  7. FERROUS SULFATE [Concomitant]
     Active Substance: FERROUS SULFATE

REACTIONS (1)
  - Rash [Unknown]
